FAERS Safety Report 10202579 (Version 1)
Quarter: 2014Q2

REPORT INFORMATION
  Report Type: Spontaneous
  Country: US (occurrence: US)
  Receive Date: 20140528
  Receipt Date: 20140528
  Transmission Date: 20141212
  Serious: Yes (Other)
  Sender: FDA-Public Use
  Company Number: US-TEVA-484000USA

PATIENT
  Sex: Female

DRUGS (1)
  1. CLARAVIS [Suspect]
     Dates: start: 20131009, end: 20140220

REACTIONS (7)
  - Crohn^s disease [Unknown]
  - Depression [Unknown]
  - Mood swings [Unknown]
  - Gastric disorder [Unknown]
  - Back pain [Unknown]
  - Diarrhoea [Unknown]
  - Gastritis [Unknown]
